FAERS Safety Report 13760641 (Version 1)
Quarter: 2017Q3

REPORT INFORMATION
  Report Type: Spontaneous
  Country: DE (occurrence: DE)
  Receive Date: 20170717
  Receipt Date: 20170717
  Transmission Date: 20171127
  Serious: Yes (Other)
  Sender: FDA-Public Use
  Company Number: DE-TEVA-785019GER

PATIENT
  Age: 34 Year
  Sex: Male
  Weight: 64 kg

DRUGS (1)
  1. CIPROFLOXACIN. [Suspect]
     Active Substance: CIPROFLOXACIN
     Indication: CYSTITIS NONINFECTIVE
     Dosage: 1000 MILLIGRAM DAILY;
     Route: 048
     Dates: start: 20160613

REACTIONS (16)
  - Joint crepitation [Not Recovered/Not Resolved]
  - Dental discomfort [Not Recovered/Not Resolved]
  - Alopecia [Recovered/Resolved]
  - Myalgia [Not Recovered/Not Resolved]
  - Decreased appetite [Recovered/Resolved]
  - Aphasia [Recovered/Resolved]
  - Weight decreased [Not Recovered/Not Resolved]
  - Abdominal discomfort [Not Recovered/Not Resolved]
  - Arthralgia [Not Recovered/Not Resolved]
  - Tendonitis [Not Recovered/Not Resolved]
  - Connective tissue disorder [Not Recovered/Not Resolved]
  - Panic attack [Recovered/Resolved]
  - Pyrexia [Recovered/Resolved]
  - Inguinal hernia [Not Recovered/Not Resolved]
  - Amnesia [Recovered/Resolved]
  - Photophobia [Recovered/Resolved]

NARRATIVE: CASE EVENT DATE: 20160614
